FAERS Safety Report 16682232 (Version 1)
Quarter: 2019Q3

REPORT INFORMATION
  Report Type: Spontaneous
  Country: GB (occurrence: GB)
  Receive Date: 20190808
  Receipt Date: 20190808
  Transmission Date: 20191004
  Serious: Yes (Other)
  Sender: FDA-Public Use
  Company Number: GB-TEVA-2019-GB-1089602

PATIENT
  Age: 31 Year
  Sex: Female
  Weight: 78.92 kg

DRUGS (5)
  1. CLARITHROMYCIN. [Suspect]
     Active Substance: CLARITHROMYCIN
     Dosage: 500 MG
  2. MIRTAZAPINE. [Concomitant]
     Active Substance: MIRTAZAPINE
  3. SERTRALINE [Concomitant]
     Active Substance: SERTRALINE HYDROCHLORIDE
  4. PROPRANOLOL [Concomitant]
     Active Substance: PROPRANOLOL HYDROCHLORIDE
  5. MICROGYNON [Concomitant]
     Active Substance: ETHINYL ESTRADIOL\LEVONORGESTREL ACETATE

REACTIONS (5)
  - Sleep terror [Unknown]
  - Hallucination [Recovered/Resolved with Sequelae]
  - Depression [Unknown]
  - Anxiety [Unknown]
  - Nightmare [Recovered/Resolved with Sequelae]

NARRATIVE: CASE EVENT DATE: 20190618
